FAERS Safety Report 7624682-6 (Version None)
Quarter: 2011Q3

REPORT INFORMATION
  Report Type: 
  Country: None (occurrence: None)
  Receive Date: 20110720
  Receipt Date: 20110719
  Transmission Date: 20111222
  Serious: No
  Sender: FDA-Public Use
  Company Number: US-B.I. PHARMACEUTICALS,INC./RIDGEFIELD-2011-BP-17992BP

PATIENT
  Sex: Male

DRUGS (8)
  1. ISOSORBIDE DINITRATE [Concomitant]
     Dosage: 30 MG
  2. HYDRALAZINE HCL [Concomitant]
  3. PRADAXA [Suspect]
     Indication: ATRIAL FIBRILLATION
     Dosage: 300 MG
     Route: 048
     Dates: start: 20110613
  4. FUROSEMIDE [Concomitant]
  5. CARVEDILOL [Concomitant]
  6. GEMFIBROZIL [Concomitant]
  7. LOVASTATIN [Concomitant]
     Indication: BLOOD CHOLESTEROL INCREASED
  8. ASPIRIN [Concomitant]
     Dosage: 81 MG

REACTIONS (1)
  - HAIR GROWTH ABNORMAL [None]
